APPROVED DRUG PRODUCT: HYDROXYZINE HYDROCHLORIDE
Active Ingredient: HYDROXYZINE HYDROCHLORIDE
Strength: 50MG
Dosage Form/Route: TABLET;ORAL
Application: A089383 | Product #001
Applicant: SUN PHARMACEUTICAL INDUSTRIES INC
Approved: May 19, 1986 | RLD: No | RS: No | Type: DISCN